FAERS Safety Report 9027205 (Version 1)
Quarter: 2013Q1

REPORT INFORMATION
  Report Type: Spontaneous
  Country: BR (occurrence: BR)
  Receive Date: 20130123
  Receipt Date: 20130123
  Transmission Date: 20140127
  Serious: Yes (Other)
  Sender: FDA-Public Use
  Company Number: BR-AMGEN-BRACT2013004806

PATIENT
  Age: 45 Year
  Sex: Male
  Weight: 105 kg

DRUGS (5)
  1. ENBREL [Suspect]
     Indication: PSORIATIC ARTHROPATHY
     Dosage: 50 MG, ONCE WEEKLY
     Route: 058
     Dates: start: 201105, end: 201110
  2. METHOTREXATE SODIUM [Suspect]
     Dosage: UNK UNK, UNK
  3. OLMETEC HCT [Concomitant]
     Indication: HYPERTENSION
     Dosage: ONE TABLET ONCE DAILY (, STRENGTH 20MG/12.5MG)
  4. PURAN T4 [Concomitant]
     Indication: HYPOTHYROIDISM
     Dosage: 50 MG, UNK
  5. PSOREX [Concomitant]
     Dosage: UNK UNK, UNK

REACTIONS (5)
  - Tachycardia [Unknown]
  - Diarrhoea [Not Recovered/Not Resolved]
  - Malaise [Not Recovered/Not Resolved]
  - Drug ineffective [Unknown]
  - Feeling abnormal [Unknown]
